FAERS Safety Report 11038345 (Version 1)
Quarter: 2015Q2

REPORT INFORMATION
  Report Type: Report from Study
  Country: JP (occurrence: JP)
  Receive Date: 20150416
  Receipt Date: 20150416
  Transmission Date: 20150821
  Serious: Yes (Hospitalization)
  Sender: FDA-Public Use
  Company Number: JP-SA-2015SA043040

PATIENT
  Age: 80 Year
  Sex: Male
  Weight: 57.2 kg

DRUGS (6)
  1. PLAVIX [Suspect]
     Active Substance: CLOPIDOGREL BISULFATE
     Indication: ARTERIOSCLEROSIS
     Route: 065
     Dates: start: 20140731, end: 20140811
  2. NEXIUM [Concomitant]
     Active Substance: ESOMEPRAZOLE MAGNESIUM
  3. MICARDIS [Concomitant]
     Active Substance: TELMISARTAN
  4. PLAVIX [Suspect]
     Active Substance: CLOPIDOGREL BISULFATE
     Indication: ARTERIOSCLEROSIS
     Route: 065
     Dates: end: 20131002
  5. PLAVIX [Suspect]
     Active Substance: CLOPIDOGREL BISULFATE
     Indication: ARTERIOSCLEROSIS
     Route: 065
     Dates: start: 20131003, end: 20140730
  6. MAGLAX [Concomitant]
     Active Substance: MAGNESIUM OXIDE

REACTIONS (2)
  - Haematuria [Recovered/Resolved]
  - Renal cancer [Recovering/Resolving]

NARRATIVE: CASE EVENT DATE: 20140312
